FAERS Safety Report 8907849 (Version 1)
Quarter: 2012Q4

REPORT INFORMATION
  Report Type: 
  Country: US (occurrence: US)
  Receive Date: 20121114
  Receipt Date: 20121114
  Transmission Date: 20130627
  Serious: Yes (Other)
  Sender: FDA-Public Use
  Company Number: US-AMGEN-USASP2012064389

PATIENT
  Age: 83 Year
  Sex: Female
  Weight: 72.56 kg

DRUGS (9)
  1. ENBREL [Suspect]
     Indication: RHEUMATOID ARTHRITIS
     Dosage: 50 mg, qwk
     Route: 058
     Dates: start: 20070109, end: 201209
  2. SIMVASTATIN [Concomitant]
     Dosage: 20 mg, qd
  3. CYMBALTA [Concomitant]
     Dosage: 60 mg, qd
  4. METOPROLOL [Concomitant]
     Dosage: 25 mg, qd
  5. LEVOTHYROXIN [Concomitant]
     Dosage: 75 mug, qd
  6. VITAMIN B6 [Concomitant]
     Dosage: UNK UNK, qd
  7. VITAMIN D /00107901/ [Concomitant]
     Dosage: UNK UNK, qd
  8. FISH OIL [Concomitant]
     Dosage: UNK
  9. ASPIRIN [Concomitant]
     Dosage: 81 mg, bid

REACTIONS (5)
  - Chronic lymphocytic leukaemia [Not Recovered/Not Resolved]
  - Dizziness [Unknown]
  - Oedema [Unknown]
  - Fatigue [Unknown]
  - Anaemia [Unknown]
